FAERS Safety Report 19222065 (Version 2)
Quarter: 2021Q3

REPORT INFORMATION
  Report Type: Spontaneous
  Country: CA (occurrence: CA)
  Receive Date: 20210506
  Receipt Date: 20210920
  Transmission Date: 20211014
  Serious: Yes (Death, Hospitalization)
  Sender: FDA-Public Use
  Company Number: CA-TEVA-2021-CA-1908027

PATIENT
  Age: 71 Year
  Sex: Male

DRUGS (14)
  1. CILAZAPRIL [Suspect]
     Active Substance: CILAZAPRIL ANHYDROUS
     Indication: PRODUCT USED FOR UNKNOWN INDICATION
     Route: 065
  2. SOTALOL. [Concomitant]
     Active Substance: SOTALOL
  3. DILTIAZEM HYDROCHLORIDE. [Interacting]
     Active Substance: DILTIAZEM HYDROCHLORIDE
     Dosage: 300 MILLIGRAM DAILY;
     Route: 065
  4. DILTIAZEM HYDROCHLORIDE. [Interacting]
     Active Substance: DILTIAZEM HYDROCHLORIDE
     Dosage: 240 MILLIGRAM DAILY;
     Route: 065
  5. METOPROLOL. [Suspect]
     Active Substance: METOPROLOL
     Indication: PRODUCT USED FOR UNKNOWN INDICATION
  6. CILAZAPRIL [Suspect]
     Active Substance: CILAZAPRIL ANHYDROUS
     Dosage: 5 MILLIGRAM DAILY;
     Route: 065
  7. ATENOLOL. [Interacting]
     Active Substance: ATENOLOL
     Route: 048
  8. SOTALOL. [Suspect]
     Active Substance: SOTALOL
     Indication: PRODUCT USED FOR UNKNOWN INDICATION
     Route: 065
  9. METOPROLOL SUCCINATE. [Concomitant]
     Active Substance: METOPROLOL SUCCINATE
  10. ATENOLOL. [Suspect]
     Active Substance: ATENOLOL
     Indication: PRODUCT USED FOR UNKNOWN INDICATION
     Dosage: 100 MILLIGRAM DAILY;
     Route: 065
  11. AMIODARONE [Suspect]
     Active Substance: AMIODARONE
     Indication: PRODUCT USED FOR UNKNOWN INDICATION
     Route: 065
  12. VERAPAMIL [Suspect]
     Active Substance: VERAPAMIL HYDROCHLORIDE
     Indication: PRODUCT USED FOR UNKNOWN INDICATION
     Dosage: 240 MILLIGRAM DAILY;
     Route: 048
  13. AMIODARONE [Concomitant]
     Active Substance: AMIODARONE
  14. DILTIAZEM HYDROCHLORIDE. [Interacting]
     Active Substance: DILTIAZEM HYDROCHLORIDE
     Indication: PRODUCT USED FOR UNKNOWN INDICATION
     Route: 065

REACTIONS (16)
  - Hypotension [Fatal]
  - Fatigue [Fatal]
  - Palpitations [Fatal]
  - Antiacetylcholine receptor antibody positive [Fatal]
  - Ejection fraction decreased [Fatal]
  - Ventricular hypokinesia [Fatal]
  - Asthenia [Fatal]
  - Atrial fibrillation [Fatal]
  - Blood potassium increased [Fatal]
  - Heart rate abnormal [Fatal]
  - Drug interaction [Fatal]
  - Cardiogenic shock [Fatal]
  - Heart rate increased [Fatal]
  - Pacemaker generated rhythm [Fatal]
  - Dyspnoea [Fatal]
  - Toxicity to various agents [Fatal]
